FAERS Safety Report 4845328-6 (Version None)
Quarter: 2005Q4

REPORT INFORMATION
  Report Type: 
  Country: None (occurrence: None)
  Receive Date: 20051205
  Receipt Date: 20051123
  Transmission Date: 20060501
  Serious: Yes (Other)
  Sender: FDA-Public Use
  Company Number: GB-GLAXOSMITHKLINE-B0402011A

PATIENT
  Age: 24 Year
  Sex: Male
  Weight: 89.2 kg

DRUGS (4)
  1. SALMETEROL [Suspect]
     Indication: ASTHMA
     Dosage: 50UG SINGLE DOSE
     Route: 055
     Dates: start: 20051121, end: 20051121
  2. PLACEBO [Suspect]
     Indication: ASTHMA
     Route: 055
     Dates: start: 20051114, end: 20051114
  3. BECOTIDE [Concomitant]
     Indication: ASTHMA
     Dosage: 200MCG TWICE PER DAY
     Route: 055
     Dates: start: 20040401
  4. VENTOLIN [Concomitant]
     Indication: ASTHMA
     Dosage: 200MCG AS REQUIRED
     Route: 055
     Dates: start: 19940101

REACTIONS (1)
  - VENTRICULAR TACHYCARDIA [None]
